FAERS Safety Report 17203574 (Version 1)
Quarter: 2019Q4

REPORT INFORMATION
  Report Type: Spontaneous
  Country: CN (occurrence: CN)
  Receive Date: 20191226
  Receipt Date: 20191226
  Transmission Date: 20200122
  Serious: Yes (Death, Other)
  Sender: FDA-Public Use
  Company Number: CN-JNJFOC-20191233102

PATIENT
  Age: 72 Year

DRUGS (1)
  1. RIVAROXABAN [Suspect]
     Active Substance: RIVAROXABAN
     Indication: ANTICOAGULANT THERAPY
     Dosage: 10 MG, QD
     Route: 048
     Dates: start: 20190731, end: 20190826

REACTIONS (5)
  - Abdominal discomfort [Unknown]
  - Anaemia [Unknown]
  - Faeces discoloured [Unknown]
  - Coagulopathy [Fatal]
  - Cardiac failure acute [Unknown]

NARRATIVE: CASE EVENT DATE: 201908
